APPROVED DRUG PRODUCT: AKOVAZ
Active Ingredient: EPHEDRINE SULFATE
Strength: 25MG/5ML (5MG/ML)
Dosage Form/Route: SOLUTION;INTRAVENOUS
Application: N208289 | Product #002 | TE Code: AP3
Applicant: EXELA PHARMA SCIENCES LLC
Approved: Aug 2, 2021 | RLD: Yes | RS: Yes | Type: RX